FAERS Safety Report 9426458 (Version 1)
Quarter: 2013Q3

REPORT INFORMATION
  Report Type: Spontaneous
  Country: US (occurrence: None)
  Receive Date: 20130729
  Receipt Date: 20130729
  Transmission Date: 20140515
  Serious: Yes (Other)
  Sender: FDA-Public Use
  Company Number: None

PATIENT
  Age: 54 Year
  Sex: 0
  Weight: 99.79 kg

DRUGS (3)
  1. ANDRODERM [Suspect]
     Indication: BLOOD TESTOSTERONE DECREASED
     Dosage: 4MIL?1 PATCH?1 TIME PER DAY?ON THE SKIN
     Dates: start: 20130715, end: 20130724
  2. LIPITOR [Concomitant]
  3. MULTIVITAMINS [Concomitant]

REACTIONS (3)
  - Application site pain [None]
  - Application site discomfort [None]
  - Application site burn [None]
